FAERS Safety Report 7086284-2 (Version None)
Quarter: 2010Q4

REPORT INFORMATION
  Report Type: 
  Country: None (occurrence: None)
  Receive Date: 20101105
  Receipt Date: 20101029
  Transmission Date: 20110411
  Serious: Yes (Hospitalization)
  Sender: FDA-Public Use
  Company Number: JP-MERCK-1010USA02225

PATIENT
  Age: 73 Year
  Sex: Female

DRUGS (3)
  1. ZETIA [Suspect]
     Indication: HYPERCHOLESTEROLAEMIA
     Route: 048
     Dates: start: 20100101, end: 20100901
  2. JANUVIA [Suspect]
     Indication: DIABETES MELLITUS
     Route: 048
     Dates: start: 20100301, end: 20100901
  3. DIOVAN [Suspect]
     Indication: HYPERTENSION
     Route: 048
     Dates: start: 20070101

REACTIONS (1)
  - ATRIAL FIBRILLATION [None]
